FAERS Safety Report 25904639 (Version 1)
Quarter: 2025Q4

REPORT INFORMATION
  Report Type: Spontaneous
  Country: EU (occurrence: EU)
  Receive Date: 20251010
  Receipt Date: 20251010
  Transmission Date: 20260117
  Serious: Yes (Other)
  Sender: ACCORD
  Company Number: EU-Accord-117406

PATIENT
  Age: 52 Year
  Sex: Female

DRUGS (5)
  1. OXALIPLATIN [Suspect]
     Active Substance: OXALIPLATIN
     Indication: Colorectal adenocarcinoma
  2. CAPECITABINE [Suspect]
     Active Substance: CAPECITABINE
     Indication: Colorectal adenocarcinoma
     Dosage: 4 CYCLES OF COMBINATION THERAPY OXALIPLATIN AND CAPECITABINE
  3. BEVACIZUMAB [Concomitant]
     Active Substance: BEVACIZUMAB
     Indication: Rectal adenocarcinoma
     Dates: start: 2017, end: 2017
  4. IRINOTECAN [Concomitant]
     Active Substance: IRINOTECAN
     Indication: Rectal adenocarcinoma
     Dates: start: 2017, end: 2017
  5. OXALIPLATIN [Suspect]
     Active Substance: OXALIPLATIN
     Indication: Rectal adenocarcinoma

REACTIONS (1)
  - Neurotoxicity [Recovered/Resolved with Sequelae]
